FAERS Safety Report 10670994 (Version 2)
Quarter: 2014Q4

REPORT INFORMATION
  Report Type: Spontaneous
  Country: US (occurrence: US)
  Receive Date: 20141223
  Receipt Date: 20141223
  Transmission Date: 20150529
  Serious: Yes (Other)
  Sender: FDA-Public Use
  Company Number: US-TEVA-456486USA

PATIENT
  Sex: Female

DRUGS (1)
  1. LOVASTATIN. [Suspect]
     Active Substance: LOVASTATIN
     Indication: BLOOD CHOLESTEROL INCREASED
     Dates: start: 20140104

REACTIONS (10)
  - Weight increased [Unknown]
  - Myalgia [Unknown]
  - Muscle swelling [Unknown]
  - Rhabdomyolysis [Unknown]
  - Ovarian disorder [Unknown]
  - Movement disorder [Unknown]
  - Musculoskeletal stiffness [Unknown]
  - Feeling hot [Unknown]
  - Hot flush [Unknown]
  - Abdominal pain [Unknown]
